FAERS Safety Report 6836782-9 (Version None)
Quarter: 2010Q3

REPORT INFORMATION
  Report Type: 
  Country: None (occurrence: None)
  Receive Date: 20100713
  Receipt Date: 20100709
  Transmission Date: 20110219
  Serious: Yes (Hospitalization)
  Sender: FDA-Public Use
  Company Number: US-GILEAD-2010-0029933

PATIENT
  Sex: Male

DRUGS (10)
  1. LETAIRIS [Suspect]
     Indication: PULMONARY ARTERIAL HYPERTENSION
     Route: 048
     Dates: start: 20100329
  2. COUMADIN [Concomitant]
  3. LASIX [Concomitant]
  4. COZAAR [Concomitant]
  5. CALAN [Concomitant]
  6. IMDUR [Concomitant]
  7. CRESTOR [Concomitant]
  8. ADVAIR DISKUS 100/50 [Concomitant]
  9. THEOPHYLLINE [Concomitant]
  10. SINGULAIR [Concomitant]

REACTIONS (1)
  - SYNCOPE [None]
